FAERS Safety Report 10314864 (Version 3)
Quarter: 2014Q3

REPORT INFORMATION
  Report Type: Spontaneous
  Country: US (occurrence: US)
  Receive Date: 20140718
  Receipt Date: 20140905
  Transmission Date: 20150326
  Serious: Yes (Hospitalization, Other)
  Sender: FDA-Public Use
  Company Number: US-PFIZER INC-2014202489

PATIENT
  Sex: Male

DRUGS (11)
  1. CEFPODOXIME PROXETIL. [Suspect]
     Active Substance: CEFPODOXIME PROXETIL
     Dosage: UNK
  2. BACLOFEN. [Suspect]
     Active Substance: BACLOFEN
     Dosage: UNK
     Route: 048
  3. LIORESAL [Suspect]
     Active Substance: BACLOFEN
     Dosage: 115.99 UG, 1X/DAY (STRENGTH: 500 UG/ML)
     Route: 037
     Dates: end: 20140618
  4. LEVAQUIN [Suspect]
     Active Substance: LEVOFLOXACIN
     Dosage: UNK
  5. DOXYCYCLINE CALCIUM [Suspect]
     Active Substance: DOXYCYCLINE CALCIUM
     Dosage: UNK
  6. BACLOFEN. [Suspect]
     Active Substance: BACLOFEN
     Indication: MUSCLE SPASTICITY
     Dosage: 204.93 UG, 1X/DAY (STRENGTH: 1000 UG/ML)
     Route: 037
     Dates: start: 20140618
  7. BACLOFEN. [Suspect]
     Active Substance: BACLOFEN
     Dosage: 249.7 UG, 1X/DAY
     Route: 037
     Dates: start: 20140703
  8. LIORESAL [Suspect]
     Active Substance: BACLOFEN
     Dosage: 186.15 UG, 1X/DAY
     Dates: start: 20140324
  9. COPAXONE [Suspect]
     Active Substance: GLATIRAMER ACETATE
     Indication: MULTIPLE SCLEROSIS
     Dosage: UNK
  10. ATARAX [Suspect]
     Active Substance: HYDROXYZINE\HYDROXYZINE HYDROCHLORIDE
     Indication: PRURITUS
     Dosage: UNK
  11. LASIX [Suspect]
     Active Substance: FUROSEMIDE
     Indication: HYPERTENSION
     Dosage: UNK

REACTIONS (25)
  - Therapeutic response increased [Unknown]
  - Abnormal behaviour [Unknown]
  - Hypertension [Unknown]
  - Bronchospasm [Unknown]
  - Withdrawal syndrome [Unknown]
  - Muscle spasms [Unknown]
  - Insomnia [Unknown]
  - Escherichia test positive [Unknown]
  - Urinary tract infection [Unknown]
  - Muscle atrophy [Unknown]
  - Muscle spasticity [Unknown]
  - Therapeutic response decreased [Unknown]
  - No therapeutic response [Unknown]
  - Stenotrophomonas test positive [Unknown]
  - Urine odour abnormal [Unknown]
  - Performance status decreased [Unknown]
  - Quality of life decreased [Unknown]
  - Condition aggravated [Unknown]
  - Pruritus [Unknown]
  - Respiratory disorder [Unknown]
  - Pain in extremity [Unknown]
  - General physical health deterioration [Unknown]
  - Muscle rigidity [Recovered/Resolved]
  - Dysstasia [Unknown]
  - Hypotonia [Unknown]

NARRATIVE: CASE EVENT DATE: 201405
